FAERS Safety Report 5983105-3 (Version None)
Quarter: 2008Q4

REPORT INFORMATION
  Report Type: 
  Country: None (occurrence: None)
  Receive Date: 20081208
  Receipt Date: 20081124
  Transmission Date: 20090506
  Serious: Yes (Hospitalization)
  Sender: FDA-Public Use
  Company Number: DE-TEVA-181333ISR

PATIENT
  Age: 18 Year
  Sex: Female

DRUGS (3)
  1. VINCRISTINE [Suspect]
     Route: 042
  2. PREDNISOLONE [Suspect]
     Route: 048
  3. CHEMOTHERAPEUTICS NOS [Suspect]

REACTIONS (10)
  - ANAEMIA [None]
  - CLOSTRIDIUM DIFFICILE COLITIS [None]
  - HYPERSENSITIVITY [None]
  - HYPOTENSION [None]
  - LIVER DISORDER [None]
  - NEUTROPENIA [None]
  - SEPTIC SHOCK [None]
  - STAPHYLOCOCCAL SCALDED SKIN SYNDROME [None]
  - TACHYCARDIA [None]
  - THROMBOCYTOPENIA [None]
